FAERS Safety Report 7698859-8 (Version None)
Quarter: 2011Q3

REPORT INFORMATION
  Report Type: 
  Country: None (occurrence: None)
  Receive Date: 20110819
  Receipt Date: 20110809
  Transmission Date: 20111222
  Serious: Yes (Hospitalization)
  Sender: FDA-Public Use
  Company Number: PHHY2010AU69227

PATIENT
  Sex: Female

DRUGS (2)
  1. ZOLEDRONOC ACID [Suspect]
     Dosage: UNK
     Route: 042
     Dates: start: 20100923
  2. ANTIBIOTICS [Concomitant]

REACTIONS (7)
  - INFLUENZA [None]
  - ABDOMINAL PAIN [None]
  - PAIN IN EXTREMITY [None]
  - NAUSEA [None]
  - WHITE BLOOD CELL COUNT DECREASED [None]
  - RESTLESS LEGS SYNDROME [None]
  - ENZYME ABNORMALITY [None]
